FAERS Safety Report 6399269-6 (Version None)
Quarter: 2009Q4

REPORT INFORMATION
  Report Type: 
  Country: None (occurrence: None)
  Receive Date: 20091014
  Receipt Date: 20091005
  Transmission Date: 20100525
  Serious: Yes (Other)
  Sender: FDA-Public Use
  Company Number: DE-RANBAXY-2008RR-15836

PATIENT
  Sex: Female

DRUGS (1)
  1. AKNOSAN [Suspect]

REACTIONS (4)
  - ERYTHEMA MULTIFORME [None]
  - JAUNDICE CHOLESTATIC [None]
  - LIVER INJURY [None]
  - XANTHOMA [None]
